FAERS Safety Report 7594046-2 (Version None)
Quarter: 2011Q3

REPORT INFORMATION
  Report Type: 
  Country: None (occurrence: None)
  Receive Date: 20110706
  Receipt Date: 20110629
  Transmission Date: 20111222
  Serious: Yes (Death)
  Sender: FDA-Public Use
  Company Number: JP-ABBOTT-11P-087-0728139-00

PATIENT
  Sex: Male

DRUGS (9)
  1. INFLIXIMAB [Concomitant]
     Indication: PSORIASIS
     Dates: start: 20110307, end: 20110322
  2. CALCIPOTRIOL [Concomitant]
     Indication: PRODUCT USED FOR UNKNOWN INDICATION
     Route: 061
  3. VITAMIN A [Concomitant]
     Indication: PRODUCT USED FOR UNKNOWN INDICATION
     Route: 061
  4. HUMIRA [Suspect]
     Dates: start: 20101027, end: 20101102
  5. GENTAMICIN SULFATE [Concomitant]
     Indication: PRODUCT USED FOR UNKNOWN INDICATION
     Route: 061
  6. HUMIRA [Suspect]
     Indication: PSORIASIS
     Route: 058
     Dates: start: 20101006, end: 20101006
  7. HUMIRA [Suspect]
     Dates: start: 20101117, end: 20110218
  8. LEVOTHYROXINE SODIUM HYDRATE [Concomitant]
     Indication: AUTOIMMUNE THYROIDITIS
     Route: 048
  9. TAROLIMUS HYDRATE [Concomitant]
     Indication: PRODUCT USED FOR UNKNOWN INDICATION
     Route: 061

REACTIONS (3)
  - CEREBRAL HAEMORRHAGE [None]
  - WEIGHT INCREASED [None]
  - DRUG INEFFECTIVE [None]
